FAERS Safety Report 4906191-8 (Version None)
Quarter: 2006Q1

REPORT INFORMATION
  Report Type: 
  Country: None (occurrence: None)
  Receive Date: 20060207
  Receipt Date: 20060207
  Transmission Date: 20060701
  Serious: Yes (Hospitalization)
  Sender: FDA-Public Use
  Company Number: None

PATIENT
  Age: 67 Year
  Sex: Male
  Weight: 107.4 kg

DRUGS (9)
  1. VERAPAMIL [Suspect]
     Indication: HYPERTENSION
     Dosage: 240 MG DAILY
     Dates: start: 19961001, end: 20051108
  2. ALBUTEROL 3/IPRATROP 0.5MG/3ML [Concomitant]
  3. POTASSIUM CL [Concomitant]
  4. GUAIFENESIN [Concomitant]
  5. SODIUM CHLORIDE [Concomitant]
  6. AMOXICILLIN [Concomitant]
  7. TRAVOPROST [Concomitant]
  8. MULTI-VITAMIN [Concomitant]
  9. LEVOTHYROXINE SODIUM [Concomitant]

REACTIONS (3)
  - CARDIAC FAILURE CONGESTIVE [None]
  - DYSPNOEA [None]
  - OEDEMA [None]
